FAERS Safety Report 9450259 (Version 4)
Quarter: 2013Q3

REPORT INFORMATION
  Report Type: Report from Study
  Country: US (occurrence: US)
  Receive Date: 20130809
  Receipt Date: 20130911
  Transmission Date: 20140515
  Serious: Yes (Other)
  Sender: FDA-Public Use
  Company Number: US-ABBOTT-13P-163-1127854-00

PATIENT
  Sex: Female

DRUGS (6)
  1. HUMIRA [Suspect]
     Indication: PSORIASIS
     Route: 058
     Dates: start: 201304
  2. DILANTIN [Concomitant]
     Indication: EPILEPSY
     Route: 048
  3. SINEMET [Concomitant]
     Indication: PARKINSON^S DISEASE
     Dosage: 25MG/100MG TWICE DAILY
     Route: 048
  4. SIMVASTATIN [Concomitant]
     Indication: HYPERTENSION
     Dosage: AT NIGHT
     Route: 048
  5. LISINOPRIL [Concomitant]
     Indication: HYPERTENSION
     Route: 048
  6. BYSTOLIC [Concomitant]
     Indication: HYPERTENSION
     Route: 048

REACTIONS (10)
  - Intervertebral disc compression [Not Recovered/Not Resolved]
  - Pain [Not Recovered/Not Resolved]
  - Oedema peripheral [Not Recovered/Not Resolved]
  - Vascular occlusion [Unknown]
  - Asthenia [Recovering/Resolving]
  - Dizziness [Recovering/Resolving]
  - Influenza [Recovering/Resolving]
  - Retching [Recovering/Resolving]
  - Hiatus hernia [Unknown]
  - Abdominal discomfort [Recovering/Resolving]
